FAERS Safety Report 12832369 (Version 1)
Quarter: 2016Q4

REPORT INFORMATION
  Report Type: Spontaneous
  Country: US (occurrence: US)
  Receive Date: 20161010
  Receipt Date: 20161010
  Transmission Date: 20170207
  Serious: No
  Sender: FDA-Public Use
  Company Number: US-JAZZ-2016-US-012980

PATIENT
  Sex: Male

DRUGS (8)
  1. XYREM [Suspect]
     Active Substance: SODIUM OXYBATE
     Indication: NARCOLEPSY
     Dosage: 2.25 G, BID
     Route: 048
     Dates: start: 201605, end: 201605
  2. XYREM [Suspect]
     Active Substance: SODIUM OXYBATE
     Dosage: 4.5 G, BID
     Route: 048
     Dates: start: 201606
  3. SEROQUEL [Concomitant]
     Active Substance: QUETIAPINE FUMARATE
  4. LORAZEPAM. [Concomitant]
     Active Substance: LORAZEPAM
  5. LAMICTAL [Concomitant]
     Active Substance: LAMOTRIGINE
  6. XYREM [Suspect]
     Active Substance: SODIUM OXYBATE
     Dosage: DOSE ADJUSTMENTS
     Route: 048
     Dates: start: 201605, end: 201606
  7. SEROQUEL XR [Concomitant]
     Active Substance: QUETIAPINE FUMARATE
  8. GEODON [Concomitant]
     Active Substance: ZIPRASIDONE HYDROCHLORIDE\ZIPRASIDONE MESYLATE

REACTIONS (1)
  - Therapeutic response unexpected [Unknown]

NARRATIVE: CASE EVENT DATE: 2016
